FAERS Safety Report 16290004 (Version 1)
Quarter: 2019Q2

REPORT INFORMATION
  Report Type: Spontaneous
  Country: CA (occurrence: CA)
  Receive Date: 20190509
  Receipt Date: 20190509
  Transmission Date: 20190711
  Serious: Yes (Other)
  Sender: FDA-Public Use
  Company Number: CA-BAYER-2019-087590

PATIENT
  Sex: Female

DRUGS (10)
  1. ACTEMRA [Suspect]
     Active Substance: TOCILIZUMAB
  2. INSULIN GLARGINE [Suspect]
     Active Substance: INSULIN GLARGINE
  3. NOVOLIN GE TORONTO [Suspect]
     Active Substance: INSULIN HUMAN
  4. XELJANZ [Concomitant]
     Active Substance: TOFACITINIB CITRATE
  5. ZANTAC [Concomitant]
     Active Substance: RANITIDINE HYDROCHLORIDE
  6. NAPROXEN SODIUM ({= 220 MG) [Suspect]
     Active Substance: NAPROXEN SODIUM
     Indication: PRODUCT USED FOR UNKNOWN INDICATION
     Dosage: UNK
  7. ETANERCEPT [Suspect]
     Active Substance: ETANERCEPT
  8. CELECOXIB. [Concomitant]
     Active Substance: CELECOXIB
  9. METFORMIN [Suspect]
     Active Substance: METFORMIN HYDROCHLORIDE
  10. RANITIDINE. [Concomitant]
     Active Substance: RANITIDINE

REACTIONS (9)
  - Condition aggravated [Unknown]
  - Gait inability [Unknown]
  - Headache [Unknown]
  - Lower respiratory tract infection [Unknown]
  - Toothache [Unknown]
  - Arthralgia [Unknown]
  - Pharyngitis [Unknown]
  - Drug ineffective [Unknown]
  - Hypoaesthesia [Unknown]
